FAERS Safety Report 16746304 (Version 3)
Quarter: 2019Q4

REPORT INFORMATION
  Report Type: Spontaneous
  Country: US (occurrence: US)
  Receive Date: 20190827
  Receipt Date: 20191011
  Transmission Date: 20200122
  Serious: Yes (Hospitalization)
  Sender: FDA-Public Use
  Company Number: US-CELGENEUS-USA-20190808223

PATIENT
  Sex: Male
  Weight: 123.94 kg

DRUGS (2)
  1. REVLIMID [Suspect]
     Active Substance: LENALIDOMIDE
     Indication: PLASMA CELL MYELOMA
     Dosage: 10 MILLIGRAM
     Route: 048
     Dates: start: 20190131
  2. REVLIMID [Suspect]
     Active Substance: LENALIDOMIDE
     Indication: NON-HODGKIN^S LYMPHOMA

REACTIONS (4)
  - Deep vein thrombosis [Unknown]
  - Bacterial toxaemia [Recovered/Resolved]
  - Pneumonia [Recovered/Resolved]
  - Pharyngitis [Recovered/Resolved]

NARRATIVE: CASE EVENT DATE: 2019
